FAERS Safety Report 16720623 (Version 2)
Quarter: 2019Q3

REPORT INFORMATION
  Report Type: Spontaneous
  Country: UA (occurrence: UA)
  Receive Date: 20190820
  Receipt Date: 20190828
  Transmission Date: 20191005
  Serious: Yes (Other)
  Sender: FDA-Public Use
  Company Number: UA-ASTRAZENECA-2019SF18593

PATIENT
  Sex: Female
  Weight: 38.6 kg

DRUGS (11)
  1. ASPARKAM [Concomitant]
     Active Substance: MAGNESIUM ASPARTATE\POTASSIUM ASPARTATE
  2. DIAFORMIN [Concomitant]
     Active Substance: METFORMIN HYDROCHLORIDE
     Indication: TYPE 2 DIABETES MELLITUS
  3. FORXIGA [Suspect]
     Active Substance: DAPAGLIFLOZIN
     Indication: TYPE 2 DIABETES MELLITUS
     Route: 048
     Dates: start: 201907
  4. ATOXIL [Concomitant]
  5. INSULIN [Concomitant]
     Active Substance: INSULIN NOS
     Indication: TYPE 2 DIABETES MELLITUS
     Dosage: BAZAL AT 22.00. 8-10 UNITS
  6. CARDIOMAGNYL [Concomitant]
     Active Substance: ASPIRIN\MAGNESIUM HYDROXIDE
     Dosage: 75 MG IN THE EVENING
  7. GLUCOSE [Concomitant]
     Active Substance: DEXTROSE
  8. CO-PRENESSA [Concomitant]
     Active Substance: INDAPAMIDE\PERINDOPRIL ERBUMINE
  9. AMARIL [Concomitant]
     Indication: TYPE 2 DIABETES MELLITUS
  10. GLUTARGIN [Concomitant]
  11. NEBIVOLOL. [Concomitant]
     Active Substance: NEBIVOLOL
     Dosage: 5 MG IN THE MORNING, CO-TRANSFERRED 8 / 2.5 IN THE EVENING NEURORUBIN 1 TABLET IN 1 MONTH

REACTIONS (1)
  - Ketosis [Not Recovered/Not Resolved]
